FAERS Safety Report 7049570-8 (Version None)
Quarter: 2010Q4

REPORT INFORMATION
  Report Type: 
  Country: None (occurrence: None)
  Receive Date: 20101013
  Receipt Date: 20100927
  Transmission Date: 20110411
  Serious: Yes (Other)
  Sender: FDA-Public Use
  Company Number: ACO_02019_2010

PATIENT
  Age: 59 Year
  Sex: Female

DRUGS (4)
  1. AMPYRA [Suspect]
     Indication: GAIT DISTURBANCE
     Dosage: (10 MG 1X ORAL)
     Route: 048
     Dates: start: 20100825, end: 20100825
  2. ZOLOFT [Concomitant]
  3. VALIUM [Concomitant]
  4. AVONEX [Concomitant]

REACTIONS (1)
  - URTICARIA [None]
